FAERS Safety Report 7832338-X (Version None)
Quarter: 2011Q4

REPORT INFORMATION
  Report Type: 
  Country: None (occurrence: None)
  Receive Date: 20111022
  Receipt Date: 20111011
  Transmission Date: 20120403
  Serious: Yes (Hospitalization, Other)
  Sender: FDA-Public Use
  Company Number: US-BAYER-2011-009473

PATIENT
  Age: 18 Year
  Sex: Female
  Weight: 58.957 kg

DRUGS (2)
  1. YAZ [Suspect]
     Indication: CONTRACEPTION
     Dosage: UNK
     Dates: start: 20081001, end: 20090201
  2. YAZ [Suspect]
     Indication: ACNE
     Dosage: UNK
     Dates: start: 20070801, end: 20080701

REACTIONS (6)
  - GALLBLADDER DISORDER [None]
  - ABDOMINAL PAIN [None]
  - PAIN [None]
  - NAUSEA [None]
  - VOMITING [None]
  - CHOLECYSTITIS [None]
